FAERS Safety Report 18208247 (Version 1)
Quarter: 2020Q3

REPORT INFORMATION
  Report Type: Spontaneous
  Country: HR (occurrence: HR)
  Receive Date: 20200828
  Receipt Date: 20200828
  Transmission Date: 20201103
  Serious: Yes (Other)
  Sender: FDA-Public Use
  Company Number: HR-PFIZER INC-2020329255

PATIENT
  Age: 16 Year
  Sex: Female

DRUGS (2)
  1. ZOLOFT [Suspect]
     Active Substance: SERTRALINE HYDROCHLORIDE
     Dosage: 1000 MG, 1X/DAY (20 TABLETS)
     Route: 048
     Dates: start: 20200704, end: 20200704
  2. XANAX [Suspect]
     Active Substance: ALPRAZOLAM
     Dosage: 20 DF, 1X/DAY (DF= 1 TABLET)
     Route: 048
     Dates: start: 20200704, end: 20200704

REACTIONS (3)
  - Suicide attempt [Unknown]
  - Intentional overdose [Unknown]
  - Toxicity to various agents [Unknown]

NARRATIVE: CASE EVENT DATE: 20200704
